FAERS Safety Report 9654418 (Version 1)
Quarter: 2013Q4

REPORT INFORMATION
  Report Type: Spontaneous
  Country: US (occurrence: None)
  Receive Date: 20131022
  Receipt Date: 20131022
  Transmission Date: 20140711
  Serious: Yes (Other)
  Sender: FDA-Public Use
  Company Number: 2012033531

PATIENT
  Age: 38 Year
  Sex: Female
  Weight: 82.1 kg

DRUGS (25)
  1. PRIVIGEN [Suspect]
     Indication: IMMUNODEFICIENCY COMMON VARIABLE
     Dosage: 15 G 1X4 WEEKS INTRAVENOUS (NOT OTHERWISE SPECIFIED)
     Route: 042
     Dates: start: 20120928, end: 20120928
  2. ACETAMINOPHEN (PARACETAMOL) [Concomitant]
  3. DIPHENHYDRAMINE (DIPHENHYDRAMINE) [Concomitant]
  4. HEPARIN (HEPARIN) [Concomitant]
  5. SODIUM CHLORIDE [Concomitant]
  6. EPI-PEN (EPINEPHRINE HYDROCHLORIDE) [Concomitant]
  7. SINGULAIR (MONTELIKAST) [Concomitant]
  8. AMBEIN (ZOLPIDEM TATRATE) [Concomitant]
  9. LOSARTAN POTASSIUM (LOSARTAN POTASSIUM) [Concomitant]
  10. SYNTHROID (LEVOTHYROXINE SODIUM) [Concomitant]
  11. ALLEGRA (FEXOFENADINE) [Concomitant]
  12. HYDROCHOROTHIAZIDE (HYDROCHLOROTHIAZIDE) [Concomitant]
  13. ADVAIR (SERETIDE /01420901/) [Concomitant]
  14. TIZANIDINE (TIZANIDINE) [Concomitant]
  15. METROPOLOL SUCCINATE (METOPROLOL SUCCINATE) [Concomitant]
  16. CYTOMEL (LIOTHYRONINE SODIUM) [Concomitant]
  17. REGLAN (METOCLOPRAMIDE) [Concomitant]
  18. METFORMIN HCL (METFORMIN HYDROCHLORIDE) [Concomitant]
  19. LISINOPRIL (LISINOPRIL) [Concomitant]
  20. ZOFRAN (ONDANSETRON) [Concomitant]
  21. FLONASE (FLUTICASONE PROPIONATE) [Concomitant]
  22. SUDAFED (PSEUDOEPHEDRINE HYDROCHLORIDE) [Concomitant]
  23. DIFLUCAN (FLUCONAZOLE) [Concomitant]
  24. JANUMET (ALL OTHER THERAPEUTIC PRODUCTS) [Concomitant]
  25. CIPROFLOXACIN (CIPROFLOXACIN) [Concomitant]

REACTIONS (10)
  - Headache [None]
  - Nausea [None]
  - Eye infection [None]
  - Upper respiratory tract infection [None]
  - Lymphadenopathy [None]
  - Swelling face [None]
  - Sinusitis [None]
  - Dysgeusia [None]
  - Urinary tract infection [None]
  - Infection susceptibility increased [None]
